FAERS Safety Report 11834051 (Version 1)
Quarter: 2015Q4

REPORT INFORMATION
  Report Type: Spontaneous
  Country: VE (occurrence: VE)
  Receive Date: 20151214
  Receipt Date: 20151214
  Transmission Date: 20160305
  Serious: Yes (Other)
  Sender: FDA-Public Use
  Company Number: PHHY2015VE163911

PATIENT
  Sex: Male

DRUGS (3)
  1. CELESTAMINE [Concomitant]
     Active Substance: BETAMETHASONE\DEXCHLORPHENIRAMINE MALEATE
     Indication: ASTHMA
     Dosage: 125 MG, QD
     Route: 065
  2. TRILEPTAL [Suspect]
     Active Substance: OXCARBAZEPINE
     Indication: SEIZURE
     Dosage: 3 CM3, QD
     Route: 048
     Dates: start: 2010, end: 20151205
  3. BRODILIN [Concomitant]
     Indication: ASTHMA
     Dosage: 2.5 MG, QD
     Route: 065

REACTIONS (3)
  - Partial seizures [Unknown]
  - Seizure [Unknown]
  - Syncope [Unknown]

NARRATIVE: CASE EVENT DATE: 20151207
